FAERS Safety Report 23669683 (Version 2)
Quarter: 2024Q2

REPORT INFORMATION
  Report Type: Spontaneous
  Country: RU (occurrence: RU)
  Receive Date: 20240325
  Receipt Date: 20240403
  Transmission Date: 20240716
  Serious: Yes (Other)
  Sender: FDA-Public Use
  Company Number: RU-PFIZER INC-PV202400039319

PATIENT
  Age: 49 Year
  Sex: Male
  Weight: 88 kg

DRUGS (4)
  1. AXITINIB [Suspect]
     Active Substance: AXITINIB
     Indication: Metastatic renal cell carcinoma
     Dosage: 5 MG, 2X/DAY
     Dates: start: 202308
  2. PEMBROLIZUMAB [Concomitant]
     Active Substance: PEMBROLIZUMAB
     Indication: Metastatic renal cell carcinoma
     Dosage: 200 MG
     Route: 042
     Dates: start: 202308, end: 202402
  3. INSULIN DETEMIR [Concomitant]
     Active Substance: INSULIN DETEMIR
     Indication: Type 2 diabetes mellitus
     Dosage: 6 UNITS IN THE MORNING AND 10 UNITS IN THE EVENING
  4. HUMALOG [Concomitant]
     Active Substance: INSULIN LISPRO
     Indication: Type 2 diabetes mellitus
     Dosage: UNK

REACTIONS (1)
  - Addison^s disease [Not Recovered/Not Resolved]

NARRATIVE: CASE EVENT DATE: 20240202
